FAERS Safety Report 24876474 (Version 1)
Quarter: 2025Q1

REPORT INFORMATION
  Report Type: Spontaneous
  Country: US (occurrence: US)
  Receive Date: 20250123
  Receipt Date: 20250123
  Transmission Date: 20250408
  Serious: Yes (Other)
  Sender: ZYDUS PHARM
  Company Number: US-CADILA HEALTHCARE LIMITED-US-ZYDUS-118141

PATIENT

DRUGS (3)
  1. ISOTRETINOIN [Suspect]
     Active Substance: ISOTRETINOIN
     Indication: Primitive neuroectodermal tumour
     Route: 065
  2. TOPOTECAN [Suspect]
     Active Substance: TOPOTECAN HYDROCHLORIDE
     Indication: Primitive neuroectodermal tumour
     Route: 037
  3. VORINOSTAT [Suspect]
     Active Substance: VORINOSTAT
     Indication: Primitive neuroectodermal tumour
     Route: 048

REACTIONS (6)
  - Choking [Recovering/Resolving]
  - Febrile neutropenia [Recovering/Resolving]
  - Respiratory arrest [Recovering/Resolving]
  - Pseudomonal sepsis [Recovering/Resolving]
  - Epistaxis [Recovering/Resolving]
  - Mucosal inflammation [Recovering/Resolving]
